FAERS Safety Report 6865524-6 (Version None)
Quarter: 2010Q3

REPORT INFORMATION
  Report Type: 
  Country: None (occurrence: None)
  Receive Date: 20100720
  Receipt Date: 20100429
  Transmission Date: 20110219
  Serious: Yes (Disabling)
  Sender: FDA-Public Use
  Company Number: 2010AL002579

PATIENT
  Age: 47 Year
  Sex: Male

DRUGS (6)
  1. CETIRIZINE HCL [Suspect]
     Indication: SEASONAL ALLERGY
     Dosage: 10 MG; PO
     Route: 048
     Dates: start: 20100207, end: 20100419
  2. CEFOXITIN [Concomitant]
  3. SERETIDE [Concomitant]
  4. MONTELUKAST [Concomitant]
  5. IPRATRPIUM [Concomitant]
  6. BROMIDE [Concomitant]

REACTIONS (4)
  - ASTHMA [None]
  - CHEST DISCOMFORT [None]
  - CONDITION AGGRAVATED [None]
  - DRUG INEFFECTIVE [None]
